FAERS Safety Report 5924916-X (Version None)
Quarter: 2008Q4

REPORT INFORMATION
  Report Type: 
  Country: None (occurrence: None)
  Receive Date: 20081017
  Receipt Date: 20081017
  Transmission Date: 20090506
  Serious: Yes (Other)
  Sender: FDA-Public Use
  Company Number: None

PATIENT
  Sex: Female
  Weight: 62.5964 kg

DRUGS (1)
  1. CHANTIX [Suspect]
     Indication: SMOKING CESSATION THERAPY
     Dosage: 1 TABLET BID PO
     Route: 048
     Dates: start: 20080901, end: 20080915

REACTIONS (2)
  - DIABETES MELLITUS INADEQUATE CONTROL [None]
  - TREATMENT FAILURE [None]
